FAERS Safety Report 20212622 (Version 2)
Quarter: 2022Q1

REPORT INFORMATION
  Report Type: Report from Study
  Country: GB (occurrence: GB)
  Receive Date: 20211221
  Receipt Date: 20220202
  Transmission Date: 20220423
  Serious: Yes (Hospitalization)
  Sender: FDA-Public Use
  Company Number: GB-GLAXOSMITHKLINE-GB2021EME257192

PATIENT
  Sex: Female

DRUGS (2)
  1. MEPOLIZUMAB [Suspect]
     Active Substance: MEPOLIZUMAB
     Indication: Asthma
     Dosage: 100 MG
     Route: 042
     Dates: start: 202110
  2. MEPOLIZUMAB [Suspect]
     Active Substance: MEPOLIZUMAB
     Indication: Product used for unknown indication
     Dosage: 100 MG
     Route: 042

REACTIONS (8)
  - Asthma [Unknown]
  - Respiratory syncytial virus infection [Unknown]
  - Peak expiratory flow rate decreased [Unknown]
  - Chest discomfort [Unknown]
  - Wheezing [Unknown]
  - Dizziness [Unknown]
  - Fatigue [Unknown]
  - Nausea [Unknown]
